FAERS Safety Report 8799163 (Version 1)
Quarter: 2012Q4

REPORT INFORMATION
  Report Type: 
  Country: FR (occurrence: FR)
  Receive Date: 20120920
  Receipt Date: 20120920
  Transmission Date: 20130627
  Serious: Yes (Hospitalization)
  Sender: FDA-Public Use
  Company Number: FR-VALEANT-2012VX004292

PATIENT
  Age: 39 Year
  Sex: Male

DRUGS (5)
  1. MESTINON [Suspect]
     Indication: MYASTHENIA GRAVIS
     Route: 048
     Dates: start: 20120515, end: 201207
  2. MESTINON [Suspect]
     Indication: MYASTHENIA GRAVIS
     Route: 065
     Dates: start: 20120713, end: 20120713
  3. MESTINON [Suspect]
     Indication: MYASTHENIA GRAVIS
     Route: 065
     Dates: start: 20120714
  4. MORPHINE [Suspect]
     Indication: DRUG USE FOR UNKNOWN INDICATION
     Route: 042
     Dates: start: 20120712, end: 20120715
  5. NEO-MERCAZOLE [Concomitant]
     Route: 065
     Dates: start: 20120515

REACTIONS (1)
  - Subileus [Recovered/Resolved]
